FAERS Safety Report 7239429-5 (Version None)
Quarter: 2011Q1

REPORT INFORMATION
  Report Type: 
  Country: None (occurrence: None)
  Receive Date: 20110121
  Receipt Date: 20110119
  Transmission Date: 20110831
  Serious: Yes (Death)
  Sender: FDA-Public Use
  Company Number: PHHY2011NL04586

PATIENT
  Sex: Female

DRUGS (2)
  1. ZOMETA [Suspect]
     Indication: BREAST CANCER METASTATIC
     Dosage: 4 MG
  2. ZOMETA [Suspect]
     Dosage: 4 MG
     Dates: start: 20110115

REACTIONS (2)
  - FALL [None]
  - SKULL FRACTURED BASE [None]
